FAERS Safety Report 9911419 (Version 2)
Quarter: 2014Q1

REPORT INFORMATION
  Report Type: Spontaneous
  Country: US (occurrence: US)
  Receive Date: 20140219
  Receipt Date: 20140320
  Transmission Date: 20141002
  Serious: Yes (Other)
  Sender: FDA-Public Use
  Company Number: PHHY2014US018428

PATIENT
  Age: 54 Year
  Sex: Male

DRUGS (2)
  1. METHADONE [Suspect]
  2. AMITRIPTYLINE [Suspect]

REACTIONS (4)
  - Renal failure acute [Recovered/Resolved]
  - Mental status changes [Recovered/Resolved]
  - Deafness bilateral [Recovered/Resolved]
  - Deafness [Recovered/Resolved]
